FAERS Safety Report 24301142 (Version 1)
Quarter: 2024Q3

REPORT INFORMATION
  Report Type: Spontaneous
  Country: US (occurrence: US)
  Receive Date: 20240910
  Receipt Date: 20240910
  Transmission Date: 20241017
  Serious: No
  Sender: ALVOGEN
  Company Number: US-ALVOGEN-2023092464

PATIENT
  Sex: Female

DRUGS (1)
  1. OXYCODONE AND ACETAMINOPHEN [Suspect]
     Active Substance: ACETAMINOPHEN\OXYCODONE HYDROCHLORIDE
     Indication: Pain
     Dosage: STRENGTH: 7.5/325 MG?627553620001
     Dates: start: 20230926, end: 202310

REACTIONS (2)
  - Dark circles under eyes [Not Recovered/Not Resolved]
  - Constipation [Recovered/Resolved]

NARRATIVE: CASE EVENT DATE: 20230901
